FAERS Safety Report 6202599-1 (Version None)
Quarter: 2009Q2

REPORT INFORMATION
  Report Type: 
  Country: None (occurrence: None)
  Receive Date: 20090521
  Receipt Date: 20090521
  Transmission Date: 20091009
  Serious: Yes (Hospitalization)
  Sender: FDA-Public Use
  Company Number: None

PATIENT
  Age: 6 Year
  Sex: Female
  Weight: 18.1439 kg

DRUGS (3)
  1. PROGRAF [Suspect]
     Indication: PROPHYLAXIS AGAINST TRANSPLANT REJECTION
     Dosage: 1 ML TWICE  A DAY PO
     Route: 048
     Dates: start: 20090321, end: 20090415
  2. SOLU-MEDROL [Concomitant]
  3. THYMOGLOBULIN [Concomitant]

REACTIONS (4)
  - IMMUNOSUPPRESSANT DRUG LEVEL DECREASED [None]
  - LIVER TRANSPLANT REJECTION [None]
  - PRODUCT QUALITY ISSUE [None]
  - SERUM SICKNESS [None]
